FAERS Safety Report 6956490-3 (Version None)
Quarter: 2010Q3

REPORT INFORMATION
  Report Type: 
  Country: None (occurrence: None)
  Receive Date: 20100830
  Receipt Date: 20100823
  Transmission Date: 20110219
  Serious: Yes (Other)
  Sender: FDA-Public Use
  Company Number: US-BAYER-201019361BCC

PATIENT
  Age: 43 Year
  Sex: Female
  Weight: 124 kg

DRUGS (24)
  1. ASPIRIN [Suspect]
     Indication: CARDIAC DISORDER
     Dosage: TOTAL DAILY DOSE: 81 MG  UNIT DOSE: 81 MG
     Route: 048
  2. LYRICA [Concomitant]
     Indication: FIBROMYALGIA
     Dosage: TOTAL DAILY DOSE: 450 MG  UNIT DOSE: 150 MG
     Route: 048
     Dates: start: 20070101
  3. LYRICA [Concomitant]
     Dosage: TOTAL DAILY DOSE: 600 MG  UNIT DOSE: 150 MG
     Route: 048
  4. LISINOPRIL [Concomitant]
     Indication: BLOOD PRESSURE INCREASED
     Dosage: TOTAL DAILY DOSE: 10 MG  UNIT DOSE: 10 MG
     Route: 048
  5. FLUTICASONE PROPIONATE [Concomitant]
     Indication: NASAL SEPTUM DEVIATION
     Route: 045
     Dates: start: 20100501
  6. SIMVASTATIN [Concomitant]
     Indication: BLOOD CHOLESTEROL INCREASED
     Dosage: TOTAL DAILY DOSE: 40 MG  UNIT DOSE: 40 MG
     Route: 048
  7. MELOXICAM [Concomitant]
     Indication: PAIN
     Dosage: TOTAL DAILY DOSE: 15 MG  UNIT DOSE: 15 MG
     Route: 048
  8. CETIRIZINE HCL [Concomitant]
     Indication: HYPERSENSITIVITY
     Dosage: TOTAL DAILY DOSE: 10 MG  UNIT DOSE: 10 MG
     Route: 048
  9. LEVOTHYROXINE [Concomitant]
     Indication: THYROID DISORDER
     Dosage: TOTAL DAILY DOSE: 50 ?G  UNIT DOSE: 50 ?G
     Route: 048
  10. TEGRETOL [Concomitant]
     Indication: MOOD SWINGS
     Dosage: UNIT DOSE: 400 MG
     Route: 048
  11. PROVIGIL [Concomitant]
     Indication: SLEEP APNOEA SYNDROME
     Dosage: TOTAL DAILY DOSE: 300 MG  UNIT DOSE: 200 MG
     Route: 048
  12. PROVIGIL [Concomitant]
     Dosage: TOTAL DAILY DOSE: 200 MG  UNIT DOSE: 200 MG
     Route: 048
  13. PROPRANOLOL [Concomitant]
     Indication: BLOOD PRESSURE INCREASED
     Dosage: TOTAL DAILY DOSE: 40 MG  UNIT DOSE: 20 MG
     Route: 048
  14. METHOCARBAMOL [Concomitant]
     Indication: PAIN
     Dosage: TOTAL DAILY DOSE: 1000 MG  UNIT DOSE: 500 MG
     Route: 048
  15. BACLOFEN [Concomitant]
     Indication: RESTLESS LEGS SYNDROME
     Dosage: TOTAL DAILY DOSE: 60 MG  UNIT DOSE: 20 MG
     Route: 048
  16. METHADOSE [Concomitant]
     Indication: PAIN
     Dosage: TOTAL DAILY DOSE: 50 MG  UNIT DOSE: 10 MG
     Route: 048
  17. CYMBALTA [Concomitant]
     Indication: DEPRESSION
     Dosage: TOTAL DAILY DOSE: 120 MG  UNIT DOSE: 60 MG
     Route: 048
  18. OMEPRAZOLE [Concomitant]
     Indication: GASTROOESOPHAGEAL REFLUX DISEASE
     Dosage: TOTAL DAILY DOSE: 40 MG  UNIT DOSE: 40 MG
     Route: 048
  19. LIDODERM [Concomitant]
     Indication: MYALGIA
     Dosage: TOTAL DAILY DOSE: 3 DF  UNIT DOSE: 1 DF
     Route: 062
  20. INSULIN DETEMIR [Concomitant]
     Indication: DIABETES MELLITUS
     Dosage: TOTAL DAILY DOSE: 94 U  UNIT DOSE: 1 U
     Route: 058
  21. MIRALAX [Concomitant]
     Indication: CONSTIPATION
     Dosage: TOTAL DAILY DOSE: 17 G  UNIT DOSE: 17 G
     Route: 048
  22. FISH OIL [Concomitant]
     Route: 065
  23. VITAMIN E [Concomitant]
     Route: 065
  24. MULTI-VITAMIN [Concomitant]
     Route: 065

REACTIONS (2)
  - CONVULSION [None]
  - FIBROMYALGIA [None]
